FAERS Safety Report 7308118-0 (Version None)
Quarter: 2011Q1

REPORT INFORMATION
  Report Type: 
  Country: None (occurrence: None)
  Receive Date: 20110223
  Receipt Date: 20110215
  Transmission Date: 20110831
  Serious: Yes (Other)
  Sender: FDA-Public Use
  Company Number: US-ROCHE-755928

PATIENT
  Sex: Female
  Weight: 68.9 kg

DRUGS (6)
  1. XELODA [Suspect]
     Dosage: FREQUENCY: TWO TIMES A DAY FOR 14 DAYS, STARTING DOSE
     Route: 048
     Dates: start: 20100903, end: 20100916
  2. XELODA [Suspect]
     Dosage: DOSE TITRATED DOWN
     Route: 048
  3. ZOLPIDEM [Concomitant]
  4. ENOXAPARIN SODIUM [Concomitant]
     Indication: VENOUS THROMBOSIS
     Route: 058
     Dates: start: 20101201
  5. CLOBETASOL PROPIONATE [Concomitant]
  6. XELODA [Suspect]
     Dosage: DOSING AMOUNT: 1000 MG EVERY MORNING AND 500 MG EVERY EVENING FOR 14 DAYS.
     Route: 048

REACTIONS (1)
  - PSORIASIS [None]
